FAERS Safety Report 18583666 (Version 1)
Quarter: 2020Q4

REPORT INFORMATION
  Report Type: Other
  Country: US (occurrence: US)
  Receive Date: 20201207
  Receipt Date: 20201207
  Transmission Date: 20210114
  Serious: Yes (Death)
  Sender: FDA-Public Use
  Company Number: US-ROCHE-2724242

PATIENT

DRUGS (100)
  1. ALPRAZOLAM. [Suspect]
     Active Substance: ALPRAZOLAM
     Indication: MAJOR DEPRESSION
  2. FLURAZEPAM [Suspect]
     Active Substance: FLURAZEPAM HYDROCHLORIDE
     Indication: BIPOLAR DISORDER
     Route: 065
  3. FLURAZEPAM [Suspect]
     Active Substance: FLURAZEPAM HYDROCHLORIDE
     Indication: SCHIZOPHRENIA
  4. FLURAZEPAM [Suspect]
     Active Substance: FLURAZEPAM HYDROCHLORIDE
     Indication: MENTAL DISORDER
  5. TRIAZOLAM. [Suspect]
     Active Substance: TRIAZOLAM
     Indication: MAJOR DEPRESSION
  6. TRIAZOLAM. [Suspect]
     Active Substance: TRIAZOLAM
     Indication: SCHIZOPHRENIA
  7. HYDROCODONE [Suspect]
     Active Substance: HYDROCODONE
     Indication: MAJOR DEPRESSION
  8. OXYCODONE [Suspect]
     Active Substance: OXYCODONE
     Indication: MAJOR DEPRESSION
  9. FENTANYL. [Suspect]
     Active Substance: FENTANYL
     Indication: MENTAL DISORDER
  10. DIHYDROCODEINE [Suspect]
     Active Substance: DIHYDROCODEINE
     Indication: SCHIZOPHRENIA
  11. MEPERIDINE [Suspect]
     Active Substance: MEPERIDINE
     Indication: SCHIZOPHRENIA
  12. LEVORPHANOL [Suspect]
     Active Substance: LEVORPHANOL
     Indication: SCHIZOPHRENIA
  13. TRAMADOL. [Suspect]
     Active Substance: TRAMADOL
     Indication: BIPOLAR DISORDER
     Route: 065
  14. TAPENTADOL [Suspect]
     Active Substance: TAPENTADOL
     Indication: MAJOR DEPRESSION
  15. DIAZEPAM. [Suspect]
     Active Substance: DIAZEPAM
     Indication: MAJOR DEPRESSION
  16. CLONAZEPAM. [Suspect]
     Active Substance: CLONAZEPAM
     Indication: MAJOR DEPRESSION
  17. CLONAZEPAM. [Suspect]
     Active Substance: CLONAZEPAM
     Indication: MENTAL DISORDER
  18. MIDAZOLAM. [Suspect]
     Active Substance: MIDAZOLAM
     Indication: MAJOR DEPRESSION
  19. MIDAZOLAM. [Suspect]
     Active Substance: MIDAZOLAM
     Indication: SCHIZOPHRENIA
  20. ESTAZOLAM. [Suspect]
     Active Substance: ESTAZOLAM
     Indication: SCHIZOPHRENIA
  21. TEMAZEPAM. [Suspect]
     Active Substance: TEMAZEPAM
     Indication: MAJOR DEPRESSION
  22. CODEINE [Suspect]
     Active Substance: CODEINE
     Indication: MAJOR DEPRESSION
  23. MORPHINE [Suspect]
     Active Substance: MORPHINE
     Indication: SCHIZOPHRENIA
  24. MEPERIDINE [Suspect]
     Active Substance: MEPERIDINE
     Indication: MENTAL DISORDER
  25. PROPOXYPHENE. [Suspect]
     Active Substance: PROPOXYPHENE
     Indication: BIPOLAR DISORDER
     Route: 065
  26. TRAMADOL. [Suspect]
     Active Substance: TRAMADOL
     Indication: MENTAL DISORDER
  27. ESTAZOLAM. [Suspect]
     Active Substance: ESTAZOLAM
     Indication: BIPOLAR DISORDER
     Route: 065
  28. FLURAZEPAM [Suspect]
     Active Substance: FLURAZEPAM HYDROCHLORIDE
     Indication: MAJOR DEPRESSION
  29. LORAZEPAM. [Suspect]
     Active Substance: LORAZEPAM
     Indication: SCHIZOPHRENIA
  30. LORAZEPAM. [Suspect]
     Active Substance: LORAZEPAM
     Indication: MENTAL DISORDER
  31. MORPHINE [Suspect]
     Active Substance: MORPHINE
     Indication: MENTAL DISORDER
  32. HYDROMORPHONE [Suspect]
     Active Substance: HYDROMORPHONE
     Indication: BIPOLAR DISORDER
     Route: 065
  33. METHADONE [Suspect]
     Active Substance: METHADONE HYDROCHLORIDE
     Indication: SCHIZOPHRENIA
  34. LEVORPHANOL [Suspect]
     Active Substance: LEVORPHANOL
     Indication: MENTAL DISORDER
  35. TRAMADOL. [Suspect]
     Active Substance: TRAMADOL
     Indication: MAJOR DEPRESSION
  36. ALPRAZOLAM. [Suspect]
     Active Substance: ALPRAZOLAM
     Indication: SCHIZOPHRENIA
  37. CHLORDIAZEPOXIDE. [Suspect]
     Active Substance: CHLORDIAZEPOXIDE
     Indication: MAJOR DEPRESSION
  38. CHLORDIAZEPOXIDE. [Suspect]
     Active Substance: CHLORDIAZEPOXIDE
     Indication: SCHIZOPHRENIA
  39. LORAZEPAM. [Suspect]
     Active Substance: LORAZEPAM
     Indication: MAJOR DEPRESSION
  40. OXAZEPAM. [Suspect]
     Active Substance: OXAZEPAM
     Indication: MENTAL DISORDER
  41. TEMAZEPAM. [Suspect]
     Active Substance: TEMAZEPAM
     Indication: MENTAL DISORDER
  42. CODEINE [Suspect]
     Active Substance: CODEINE
     Indication: BIPOLAR DISORDER
     Route: 065
  43. HYDROCODONE [Suspect]
     Active Substance: HYDROCODONE
     Indication: BIPOLAR DISORDER
     Route: 065
  44. DIHYDROCODEINE [Suspect]
     Active Substance: DIHYDROCODEINE
     Indication: BIPOLAR DISORDER
     Route: 065
  45. MEPERIDINE [Suspect]
     Active Substance: MEPERIDINE
     Indication: MAJOR DEPRESSION
  46. PENTAZOCINE [Suspect]
     Active Substance: PENTAZOCINE
     Indication: SCHIZOPHRENIA
  47. PENTAZOCINE [Suspect]
     Active Substance: PENTAZOCINE
     Indication: MENTAL DISORDER
  48. PROPOXYPHENE. [Suspect]
     Active Substance: PROPOXYPHENE
     Indication: MENTAL DISORDER
  49. LEVORPHANOL [Suspect]
     Active Substance: LEVORPHANOL
     Indication: BIPOLAR DISORDER
     Route: 065
  50. DIAZEPAM. [Suspect]
     Active Substance: DIAZEPAM
     Indication: SCHIZOPHRENIA
  51. ALPRAZOLAM. [Suspect]
     Active Substance: ALPRAZOLAM
     Indication: MENTAL DISORDER
  52. CHLORDIAZEPOXIDE. [Suspect]
     Active Substance: CHLORDIAZEPOXIDE
     Indication: BIPOLAR DISORDER
     Route: 065
  53. OXAZEPAM. [Suspect]
     Active Substance: OXAZEPAM
     Indication: MAJOR DEPRESSION
  54. TEMAZEPAM. [Suspect]
     Active Substance: TEMAZEPAM
     Indication: SCHIZOPHRENIA
  55. TRIAZOLAM. [Suspect]
     Active Substance: TRIAZOLAM
     Indication: MENTAL DISORDER
  56. HYDROCODONE [Suspect]
     Active Substance: HYDROCODONE
     Indication: MENTAL DISORDER
  57. OXYCODONE [Suspect]
     Active Substance: OXYCODONE
     Indication: MENTAL DISORDER
  58. MORPHINE [Suspect]
     Active Substance: MORPHINE
     Indication: BIPOLAR DISORDER
     Route: 065
  59. MORPHINE [Suspect]
     Active Substance: MORPHINE
     Indication: MAJOR DEPRESSION
  60. FENTANYL. [Suspect]
     Active Substance: FENTANYL
     Indication: MAJOR DEPRESSION
  61. HYDROMORPHONE [Suspect]
     Active Substance: HYDROMORPHONE
     Indication: MENTAL DISORDER
  62. METHADONE [Suspect]
     Active Substance: METHADONE HYDROCHLORIDE
     Indication: MAJOR DEPRESSION
  63. PENTAZOCINE [Suspect]
     Active Substance: PENTAZOCINE
     Indication: MAJOR DEPRESSION
  64. TRAMADOL. [Suspect]
     Active Substance: TRAMADOL
     Indication: SCHIZOPHRENIA
  65. DIAZEPAM. [Suspect]
     Active Substance: DIAZEPAM
     Indication: MENTAL DISORDER
  66. MIDAZOLAM. [Suspect]
     Active Substance: MIDAZOLAM
     Indication: BIPOLAR DISORDER
     Route: 065
  67. CHLORDIAZEPOXIDE. [Suspect]
     Active Substance: CHLORDIAZEPOXIDE
     Indication: MENTAL DISORDER
  68. ESTAZOLAM. [Suspect]
     Active Substance: ESTAZOLAM
     Indication: MENTAL DISORDER
  69. OXAZEPAM. [Suspect]
     Active Substance: OXAZEPAM
     Indication: SCHIZOPHRENIA
  70. TEMAZEPAM. [Suspect]
     Active Substance: TEMAZEPAM
     Indication: BIPOLAR DISORDER
     Route: 065
  71. TRIAZOLAM. [Suspect]
     Active Substance: TRIAZOLAM
     Indication: BIPOLAR DISORDER
     Route: 065
  72. OXYCODONE [Suspect]
     Active Substance: OXYCODONE
     Indication: BIPOLAR DISORDER
     Route: 065
  73. OXYCODONE [Suspect]
     Active Substance: OXYCODONE
     Indication: SCHIZOPHRENIA
  74. DIHYDROCODEINE [Suspect]
     Active Substance: DIHYDROCODEINE
     Indication: MAJOR DEPRESSION
  75. PROPOXYPHENE. [Suspect]
     Active Substance: PROPOXYPHENE
     Indication: MAJOR DEPRESSION
  76. TAPENTADOL [Suspect]
     Active Substance: TAPENTADOL
     Indication: BIPOLAR DISORDER
     Route: 065
  77. TAPENTADOL [Suspect]
     Active Substance: TAPENTADOL
     Indication: SCHIZOPHRENIA
  78. DIAZEPAM. [Suspect]
     Active Substance: DIAZEPAM
     Indication: BIPOLAR DISORDER
     Route: 065
  79. ALPRAZOLAM. [Suspect]
     Active Substance: ALPRAZOLAM
     Indication: BIPOLAR DISORDER
     Route: 065
  80. LORAZEPAM. [Suspect]
     Active Substance: LORAZEPAM
     Indication: BIPOLAR DISORDER
     Route: 065
  81. CODEINE [Suspect]
     Active Substance: CODEINE
     Indication: SCHIZOPHRENIA
  82. HYDROCODONE [Suspect]
     Active Substance: HYDROCODONE
     Indication: SCHIZOPHRENIA
  83. HYDROMORPHONE [Suspect]
     Active Substance: HYDROMORPHONE
     Indication: MAJOR DEPRESSION
  84. METHADONE [Suspect]
     Active Substance: METHADONE HYDROCHLORIDE
     Indication: MENTAL DISORDER
  85. CLONAZEPAM. [Suspect]
     Active Substance: CLONAZEPAM
     Indication: BIPOLAR DISORDER
     Route: 065
  86. CLONAZEPAM. [Suspect]
     Active Substance: CLONAZEPAM
     Indication: SCHIZOPHRENIA
  87. MIDAZOLAM. [Suspect]
     Active Substance: MIDAZOLAM
     Indication: MENTAL DISORDER
  88. ESTAZOLAM. [Suspect]
     Active Substance: ESTAZOLAM
     Indication: MAJOR DEPRESSION
  89. OXAZEPAM. [Suspect]
     Active Substance: OXAZEPAM
     Indication: BIPOLAR DISORDER
     Route: 065
  90. CODEINE [Suspect]
     Active Substance: CODEINE
     Indication: MENTAL DISORDER
  91. FENTANYL. [Suspect]
     Active Substance: FENTANYL
     Indication: BIPOLAR DISORDER
     Route: 065
  92. FENTANYL. [Suspect]
     Active Substance: FENTANYL
     Indication: SCHIZOPHRENIA
  93. HYDROMORPHONE [Suspect]
     Active Substance: HYDROMORPHONE
     Indication: SCHIZOPHRENIA
  94. METHADONE [Suspect]
     Active Substance: METHADONE HYDROCHLORIDE
     Indication: BIPOLAR DISORDER
     Route: 065
  95. DIHYDROCODEINE [Suspect]
     Active Substance: DIHYDROCODEINE
     Indication: MENTAL DISORDER
  96. MEPERIDINE [Suspect]
     Active Substance: MEPERIDINE
     Indication: BIPOLAR DISORDER
     Route: 065
  97. PENTAZOCINE [Suspect]
     Active Substance: PENTAZOCINE
     Indication: BIPOLAR DISORDER
     Route: 065
  98. PROPOXYPHENE. [Suspect]
     Active Substance: PROPOXYPHENE
     Indication: SCHIZOPHRENIA
  99. LEVORPHANOL [Suspect]
     Active Substance: LEVORPHANOL
     Indication: MAJOR DEPRESSION
  100. TAPENTADOL [Suspect]
     Active Substance: TAPENTADOL
     Indication: MENTAL DISORDER

REACTIONS (2)
  - Overdose [Fatal]
  - Injury [Fatal]
